FAERS Safety Report 6400861-0 (Version None)
Quarter: 2009Q4

REPORT INFORMATION
  Report Type: 
  Country: None (occurrence: None)
  Receive Date: 20091009
  Receipt Date: 20081222
  Transmission Date: 20100525
  Serious: Yes (Death)
  Sender: FDA-Public Use
  Company Number: 2008SP025934

PATIENT
  Age: 81 Year
  Sex: Male

DRUGS (3)
  1. TEMOZOLOMIDE [Suspect]
     Indication: MALIGNANT MELANOMA
     Dosage: PO; 200 MG; QD; PO
     Route: 048
     Dates: end: 20071024
  2. TEMOZOLOMIDE [Suspect]
     Indication: MALIGNANT MELANOMA
     Dosage: PO; 200 MG; QD; PO
     Route: 048
     Dates: start: 20070312
  3. GLEEVEC [Suspect]
     Indication: MALIGNANT MELANOMA
     Dates: start: 20080501

REACTIONS (2)
  - DISEASE PROGRESSION [None]
  - PANCYTOPENIA [None]
